FAERS Safety Report 6809645-2 (Version None)
Quarter: 2010Q2

REPORT INFORMATION
  Report Type: 
  Country: None (occurrence: None)
  Receive Date: 20100630
  Receipt Date: 20100618
  Transmission Date: 20101027
  Serious: Yes (Hospitalization)
  Sender: FDA-Public Use
  Company Number: CA-PFIZER INC-2006134964

PATIENT
  Age: 75 Year
  Sex: Male
  Weight: 76 kg

DRUGS (7)
  1. SUNITINIB MALATE [Suspect]
     Indication: GASTROINTESTINAL STROMAL TUMOUR
     Dosage: 50 MG,DAILY,  4 WEEKS ON/2 WEEKS OFF
     Route: 048
     Dates: start: 20060607
  2. METOPROLOL [Suspect]
     Dosage: UNK
     Route: 048
     Dates: start: 20060707, end: 20061027
  3. CODEINE SULFATE [Concomitant]
     Route: 048
     Dates: start: 20030701
  4. AVAPRO [Concomitant]
     Route: 048
     Dates: start: 19960101
  5. VITAMIN D [Concomitant]
     Route: 048
     Dates: start: 20051101
  6. FISH OIL [Concomitant]
     Route: 048
     Dates: start: 20051101
  7. PARIET [Concomitant]
     Route: 048
     Dates: start: 20060726

REACTIONS (5)
  - CHEST PAIN [None]
  - DIZZINESS [None]
  - RENAL FAILURE ACUTE [None]
  - TUBULOINTERSTITIAL NEPHRITIS [None]
  - WHITE BLOOD CELLS URINE POSITIVE [None]
